FAERS Safety Report 21311033 (Version 12)
Quarter: 2022Q4

REPORT INFORMATION
  Report Type: Report from Study
  Country: CN (occurrence: None)
  Receive Date: 20220909
  Receipt Date: 20221124
  Transmission Date: 20230113
  Serious: Yes (Death, Life-Threatening, Hospitalization)
  Sender: FDA-Public Use
  Company Number: CN-ROCHE-3175464

PATIENT
  Age: 70 Year
  Sex: Female
  Weight: 48 kg

DRUGS (64)
  1. ATEZOLIZUMAB [Suspect]
     Active Substance: ATEZOLIZUMAB
     Indication: Lung adenocarcinoma
     Dosage: MOST RECENT DOSE OF STUDY DRUG PRIOR TO AE/SAE: 13/JUL/2022
     Route: 041
     Dates: start: 20211125
  2. BEVACIZUMAB [Suspect]
     Active Substance: BEVACIZUMAB
     Indication: Lung adenocarcinoma
     Dosage: MOST RECENT DOSE OF STUDY DRUG PRIOR TO AE/SAE: 13/JUL/2022 ;700 MG
     Route: 042
     Dates: start: 20211125
  3. CARBOPLATIN [Suspect]
     Active Substance: CARBOPLATIN
     Indication: Lung adenocarcinoma
     Dosage: MOST RECENT DOSE OF STUDY DRUG PRIOR TO AE/SAE: 26/JAN/2022, 350 MG
     Route: 042
     Dates: start: 20211125
  4. PEMETREXED [Suspect]
     Active Substance: PEMETREXED
     Indication: Lung adenocarcinoma
     Dosage: MOST RECENT DOSE OF STUDY DRUG PRIOR TO AE/SAE: 13/JUL/2022; 660 MG
     Route: 042
     Dates: start: 20211125
  5. OMEPRAZOLE [Concomitant]
     Active Substance: OMEPRAZOLE
     Route: 048
     Dates: start: 20220426
  6. METHYLPREDNISOLONE [Concomitant]
     Active Substance: METHYLPREDNISOLONE
     Indication: Pneumonitis
     Route: 048
     Dates: start: 20220513
  7. OMEPRAZOLE SODIUM [Concomitant]
     Active Substance: OMEPRAZOLE SODIUM
     Dates: start: 20220905, end: 20220912
  8. HUMAN IMMUNOGLOBULIN G [Concomitant]
     Active Substance: HUMAN IMMUNOGLOBULIN G
     Dates: start: 20220905, end: 20220907
  9. HUMAN IMMUNOGLOBULIN G [Concomitant]
     Active Substance: HUMAN IMMUNOGLOBULIN G
     Dates: start: 20220907, end: 20220912
  10. HUMAN IMMUNOGLOBULIN G [Concomitant]
     Active Substance: HUMAN IMMUNOGLOBULIN G
     Dates: start: 20220912, end: 20220912
  11. HUMAN IMMUNOGLOBULIN G [Concomitant]
     Active Substance: HUMAN IMMUNOGLOBULIN G
     Dates: start: 20220913, end: 20220913
  12. AMINO ACIDS, SOURCE UNSPECIFIED [Concomitant]
     Active Substance: AMINO ACIDS, SOURCE UNSPECIFIED
     Dates: start: 20220905, end: 20220911
  13. MEDIUM AND LONG CHAIN FAT EMULSION [Concomitant]
     Dates: start: 20220905, end: 20220912
  14. BORIC ACID [Concomitant]
     Active Substance: BORIC ACID
     Dates: start: 20220905, end: 20220912
  15. BORIC ACID [Concomitant]
     Active Substance: BORIC ACID
     Dates: start: 20220905
  16. ITOPRIDE HYDROCHLORIDE [Concomitant]
     Active Substance: ITOPRIDE HYDROCHLORIDE
     Route: 048
     Dates: start: 20220905, end: 20220912
  17. FUROSEMIDE [Concomitant]
     Active Substance: FUROSEMIDE
     Dates: start: 20220905, end: 20220912
  18. ALBUMIN HUMAN [Concomitant]
     Active Substance: ALBUMIN HUMAN
     Indication: Hypoalbuminaemia
     Dates: start: 20220906, end: 20220909
  19. ALBUMIN HUMAN [Concomitant]
     Active Substance: ALBUMIN HUMAN
     Dates: start: 20220909, end: 20220912
  20. ALBUMIN HUMAN [Concomitant]
     Active Substance: ALBUMIN HUMAN
     Dates: start: 20220905, end: 20220905
  21. ALBUMIN HUMAN [Concomitant]
     Active Substance: ALBUMIN HUMAN
     Dates: start: 20220907, end: 20220910
  22. ALBUMIN HUMAN [Concomitant]
     Active Substance: ALBUMIN HUMAN
     Dates: start: 20220912, end: 20220914
  23. ZINC GLUCONATE [Concomitant]
     Active Substance: ZINC GLUCONATE
     Route: 048
     Dates: start: 20220911, end: 20220912
  24. IMIPENEM AND CILASTATIN SODIUM [Concomitant]
     Active Substance: CILASTATIN SODIUM\IMIPENEM
     Route: 042
     Dates: start: 20220911, end: 20220912
  25. IMIPENEM AND CILASTATIN SODIUM [Concomitant]
     Active Substance: CILASTATIN SODIUM\IMIPENEM
     Route: 042
     Dates: start: 20220913, end: 20220914
  26. OPRELVEKIN [Concomitant]
     Active Substance: OPRELVEKIN
     Indication: Leukocytosis
     Route: 050
     Dates: start: 20220912, end: 20220913
  27. BENZALKONIUM CHLORIDE [Concomitant]
     Active Substance: BENZALKONIUM CHLORIDE
     Route: 061
     Dates: start: 20220906, end: 20220906
  28. MONTMORILLONITE [Concomitant]
     Active Substance: MONTMORILLONITE
     Dates: start: 20220907, end: 20220908
  29. MONTMORILLONITE [Concomitant]
     Active Substance: MONTMORILLONITE
     Dates: start: 20220911, end: 20220911
  30. OXYCODONE HYDROCHLORIDE [Concomitant]
     Active Substance: OXYCODONE HYDROCHLORIDE
     Indication: Analgesic therapy
     Dates: start: 20220910, end: 20220912
  31. OXYCODONE HYDROCHLORIDE [Concomitant]
     Active Substance: OXYCODONE HYDROCHLORIDE
     Dates: start: 20220908, end: 20220909
  32. OXYCODONE HYDROCHLORIDE [Concomitant]
     Active Substance: OXYCODONE HYDROCHLORIDE
     Dates: start: 20220910, end: 20220910
  33. VITAMIN B2 [Concomitant]
     Active Substance: RIBOFLAVIN
     Route: 048
     Dates: start: 20220911, end: 20220912
  34. INSULIN HUMAN [Concomitant]
     Active Substance: INSULIN HUMAN
     Indication: Hypoglycaemia
     Dates: start: 20220907, end: 20220910
  35. INSULIN HUMAN [Concomitant]
     Active Substance: INSULIN HUMAN
     Dates: start: 20220913, end: 20220913
  36. POTASSIUM CHLORIDE [Concomitant]
     Active Substance: POTASSIUM CHLORIDE
     Dates: start: 20220908, end: 20220908
  37. POTASSIUM CHLORIDE [Concomitant]
     Active Substance: POTASSIUM CHLORIDE
     Dates: start: 20220910, end: 20220911
  38. LIDOCAINE [Concomitant]
     Active Substance: LIDOCAINE
     Dosage: ORAL CARE
     Dates: start: 20220909, end: 20220909
  39. IBUPROFEN [Concomitant]
     Active Substance: IBUPROFEN
     Dates: start: 20220911, end: 20220911
  40. INSULIN HUMAN [Concomitant]
     Active Substance: INSULIN HUMAN
     Indication: Blood glucose decreased
     Dosage: 8 U
     Route: 042
     Dates: start: 20220911, end: 20220911
  41. INSULIN HUMAN [Concomitant]
     Active Substance: INSULIN HUMAN
     Route: 042
     Dates: start: 20220912, end: 20220914
  42. AMBROXOL HYDROCHLORIDE [Concomitant]
     Active Substance: AMBROXOL HYDROCHLORIDE
     Dates: start: 20220912, end: 20220914
  43. PANTOPRAZOLE SODIUM [Concomitant]
     Active Substance: PANTOPRAZOLE SODIUM
     Dates: start: 20220912, end: 20220913
  44. PANTOPRAZOLE SODIUM [Concomitant]
     Active Substance: PANTOPRAZOLE SODIUM
     Dates: start: 20220913, end: 20220914
  45. MEROPENEM [Concomitant]
     Active Substance: MEROPENEM
     Dates: start: 20220912, end: 20220914
  46. LINEZOLID [Concomitant]
     Active Substance: LINEZOLID
     Dates: start: 20220912, end: 20220914
  47. VORICONAZOLE [Concomitant]
     Active Substance: VORICONAZOLE
     Dates: start: 20220912, end: 20220914
  48. VORICONAZOLE [Concomitant]
     Active Substance: VORICONAZOLE
     Dates: start: 20220912, end: 20220912
  49. VITAMIN K1 [Concomitant]
     Active Substance: PHYTONADIONE
     Dates: start: 20220912, end: 20220914
  50. DEXMEDETOMIDINE HYDROCHLORIDE [Concomitant]
     Active Substance: DEXMEDETOMIDINE HYDROCHLORIDE
     Dates: start: 20220912, end: 20220914
  51. REMIFENTANIL HYDROCHLORIDE [Concomitant]
     Active Substance: REMIFENTANIL HYDROCHLORIDE
     Indication: Analgesic therapy
     Dates: start: 20220912, end: 20220912
  52. REMIFENTANIL HYDROCHLORIDE [Concomitant]
     Active Substance: REMIFENTANIL HYDROCHLORIDE
     Dates: start: 20220912, end: 20220914
  53. EPHEDRINE HYDROCHLORIDE [Concomitant]
     Active Substance: EPHEDRINE HYDROCHLORIDE
     Indication: Blood pressure increased
     Dates: start: 20220913, end: 20220913
  54. FENTANYL CITRATE [Concomitant]
     Active Substance: FENTANYL CITRATE
     Indication: Analgesic therapy
     Dates: start: 20220913, end: 20220913
  55. NOREPINEPHRINE BITARTRATE [Concomitant]
     Active Substance: NOREPINEPHRINE BITARTRATE
     Route: 042
     Dates: start: 20220913, end: 20220913
  56. SODIUM CHLORIDE [Concomitant]
     Active Substance: SODIUM CHLORIDE
     Dates: start: 20220913, end: 20220913
  57. SODIUM BICARBONATE [Concomitant]
     Active Substance: SODIUM BICARBONATE
     Dates: start: 20220913, end: 20220913
  58. POVIDONE-IODINE [Concomitant]
     Active Substance: POVIDONE-IODINE
     Dates: start: 20220913, end: 20220913
  59. DESLANOSIDE [Concomitant]
     Active Substance: DESLANOSIDE
     Route: 042
     Dates: start: 20220913, end: 20220913
  60. AMIODARONE HYDROCHLORIDE [Concomitant]
     Active Substance: AMIODARONE HYDROCHLORIDE
     Indication: Arrhythmia
     Route: 042
     Dates: start: 20220913, end: 20220913
  61. CALCIUM GLUCONATE [Concomitant]
     Active Substance: CALCIUM GLUCONATE
     Dates: start: 20220913, end: 20220914
  62. EPINEPHRINE HYDROCHLORIDE [Concomitant]
     Active Substance: EPINEPHRINE HYDROCHLORIDE
     Route: 042
     Dates: start: 20220914, end: 20220914
  63. HUANGQIN [Concomitant]
  64. FU LING (TRADITIONAL CHINESE MEDICINE) [Concomitant]
     Dates: start: 20220806, end: 202208

REACTIONS (6)
  - Toxic epidermal necrolysis [Not Recovered/Not Resolved]
  - Coagulopathy [Not Recovered/Not Resolved]
  - Disseminated intravascular coagulation [Not Recovered/Not Resolved]
  - Pancytopenia [Not Recovered/Not Resolved]
  - Respiratory failure [Fatal]
  - Septic shock [Not Recovered/Not Resolved]

NARRATIVE: CASE EVENT DATE: 20220827
